FAERS Safety Report 12485789 (Version 1)
Quarter: 2016Q2

REPORT INFORMATION
  Report Type: Spontaneous
  Country: US (occurrence: US)
  Receive Date: 20160621
  Receipt Date: 20160621
  Transmission Date: 20160815
  Serious: No
  Sender: FDA-Public Use
  Company Number: US-BAYER-2016-112412

PATIENT
  Sex: Female

DRUGS (1)
  1. FINACEA [Suspect]
     Active Substance: AZELAIC ACID
     Indication: ROSACEA
     Dosage: UNK

REACTIONS (6)
  - Malaise [None]
  - Fatigue [None]
  - Burning sensation [None]
  - Dry skin [None]
  - Skin discolouration [None]
  - Erythema [None]
